FAERS Safety Report 5707744-X (Version None)
Quarter: 2008Q2

REPORT INFORMATION
  Report Type: 
  Country: None (occurrence: None)
  Receive Date: 20080417
  Receipt Date: 20080102
  Transmission Date: 20081010
  Serious: No
  Sender: FDA-Public Use
  Company Number: US-BAYER-200810323NA

PATIENT
  Age: 32 Year
  Sex: Female
  Weight: 100 kg

DRUGS (3)
  1. MIRENA [Suspect]
     Indication: CONTRACEPTION
     Route: 015
     Dates: start: 20071101, end: 20071101
  2. EFFEXOR [Concomitant]
     Indication: MIGRAINE
     Dates: start: 20061101
  3. TOPROL-XL [Concomitant]
     Indication: MIGRAINE
     Dates: start: 20061101

REACTIONS (3)
  - ABDOMINAL PAIN [None]
  - ABDOMINAL PAIN LOWER [None]
  - IUCD COMPLICATION [None]
